FAERS Safety Report 17736751 (Version 4)
Quarter: 2020Q2

REPORT INFORMATION
  Report Type: Report from Study
  Country: None (occurrence: NL)
  Receive Date: 20200502
  Receipt Date: 20200611
  Transmission Date: 20200714
  Serious: Yes (Other)
  Sender: FDA-Public Use
  Company Number: NL-ABBVIE-20K-114-3384668-00

PATIENT
  Sex: Male
  Weight: 58 kg

DRUGS (12)
  1. DUODOPA [Suspect]
     Active Substance: CARBIDOPA\LEVODOPA
     Dosage: CD: 4.6 EXTRA DOSE 5-6 TIMES A DAY
     Route: 050
  2. DUODOPA [Suspect]
     Active Substance: CARBIDOPA\LEVODOPA
     Dosage: MD: 8.0 CD: 4.6 ED: 4.3  CND: 3.7
     Route: 050
  3. DUODOPA [Suspect]
     Active Substance: CARBIDOPA\LEVODOPA
     Dosage: DAY: MD: 3.0; CD: 5.2 ML/HOUR; ED: 5.0 ML; MD: 5.0 CD 3.7 ML; ED 4.3 ML
     Route: 050
  4. DUODOPA [Suspect]
     Active Substance: CARBIDOPA\LEVODOPA
     Dosage: MD: 8.0 CD: 4.6 ED: 4.3 NIGHT DOSE: 3.7
     Route: 050
  5. DUODOPA [Suspect]
     Active Substance: CARBIDOPA\LEVODOPA
     Dosage: MD: 3.0; CD: 5.2 ML/HOUR; ED: 5.0 ML; ND 5.0; CDN 3.7; EDN 4.3 (100 ML/CONTINUOUS)
     Route: 050
  6. DUODOPA [Suspect]
     Active Substance: CARBIDOPA\LEVODOPA
     Dosage: MORNING DOSE: 8.0 CONTINUOUS DOSE: 4.4 EXTRA DOSE 4.3 NIGHT DOSE: 3.7 EXTRA NIGHT DOSE 4.3
     Route: 050
  7. RIVASTIGMINE. [Concomitant]
     Active Substance: RIVASTIGMINE
     Indication: PARKINSON^S DISEASE
     Dosage: 4.6/24 HOURS
  8. MACROGOL [Concomitant]
     Active Substance: POLYETHYLENE GLYCOLS
     Indication: ABNORMAL FAECES
  9. DUODOPA [Suspect]
     Active Substance: CARBIDOPA\LEVODOPA
     Indication: PARKINSON^S DISEASE
     Dosage: MORNING DOSE: 9.2, CONTINUOUS DAY: 4.4, EXTRA DOSE: 4.3, CND: 3.7
     Route: 050
     Dates: start: 20151020
  10. DUODOPA [Suspect]
     Active Substance: CARBIDOPA\LEVODOPA
     Dosage: MD: 8.0 CD: 4.8 ED: 4.3
     Route: 050
  11. DUODOPA [Suspect]
     Active Substance: CARBIDOPA\LEVODOPA
     Dosage: MD: 7.5 ML; CD: 5.0 ML/HOUR; ED: 4.3 ML; NIGHT PUMP CD 3.7 ML; ED 4.3 ML
     Route: 050
  12. CLOZAPINE. [Concomitant]
     Active Substance: CLOZAPINE
     Indication: PARKINSON^S DISEASE

REACTIONS (5)
  - General physical health deterioration [Not Recovered/Not Resolved]
  - Fear [Not Recovered/Not Resolved]
  - Gait disturbance [Not Recovered/Not Resolved]
  - Epilepsy [Not Recovered/Not Resolved]
  - Freezing phenomenon [Not Recovered/Not Resolved]
